FAERS Safety Report 6184167-3 (Version None)
Quarter: 2009Q2

REPORT INFORMATION
  Report Type: 
  Country: None (occurrence: None)
  Receive Date: 20090506
  Receipt Date: 20090425
  Transmission Date: 20091009
  Serious: No
  Sender: FDA-Public Use
  Company Number: 8045457

PATIENT
  Sex: Female
  Weight: 2.069 kg

DRUGS (2)
  1. KEPPRA [Suspect]
     Dosage: 500 MG 2/D TRP
     Route: 064
     Dates: start: 20080825, end: 20090427
  2. KEPPRA [Suspect]
     Dosage: 500 MG 2/D TRM
     Dates: start: 20090427

REACTIONS (3)
  - DRUG EXPOSURE VIA BREAST MILK [None]
  - MATERNAL DRUGS AFFECTING FOETUS [None]
  - PREMATURE BABY [None]
